FAERS Safety Report 17010085 (Version 4)
Quarter: 2019Q4

REPORT INFORMATION
  Report Type: Spontaneous
  Country: US (occurrence: US)
  Receive Date: 20191108
  Receipt Date: 20191227
  Transmission Date: 20200122
  Serious: Yes (Hospitalization)
  Sender: FDA-Public Use
  Company Number: US-VERTEX PHARMACEUTICALS-2019-010815

PATIENT
  Age: 8 Year
  Sex: Female

DRUGS (10)
  1. CYPROHEPTADINE [CYPROHEPTADINE HYDROCHLORIDE] [Concomitant]
  2. PERTZYE [Concomitant]
     Active Substance: PANCRELIPASE AMYLASE\PANCRELIPASE LIPASE\PANCRELIPASE PROTEASE
  3. SODIUM CHLORIDE. [Concomitant]
     Active Substance: SODIUM CHLORIDE
  4. PULMOZYME [Concomitant]
     Active Substance: DORNASE ALFA
  5. AQUADERM [HYALURONATE SODIUM] [Concomitant]
  6. ALBUTEROL [SALBUTAMOL] [Concomitant]
     Active Substance: ALBUTEROL
  7. SYMDEKO [Suspect]
     Active Substance: IVACAFTOR\TEZACAFTOR
     Indication: CYSTIC FIBROSIS
     Dosage: TEZACAFTOR 50MG/IVACAFTOR 75MG AM; IVACAFTOR 75 MG PM
     Route: 048
     Dates: start: 20190728
  8. KITABIS PAK [Concomitant]
     Active Substance: TOBRAMYCIN
  9. LACTOSE [Concomitant]
     Active Substance: LACTOSE
  10. PULMOSAL [Concomitant]
     Active Substance: SODIUM CHLORIDE

REACTIONS (2)
  - Cystic fibrosis [Unknown]
  - Pulmonary function test decreased [Unknown]

NARRATIVE: CASE EVENT DATE: 20191003
